FAERS Safety Report 8160651-8 (Version None)
Quarter: 2012Q1

REPORT INFORMATION
  Report Type: 
  Country: None (occurrence: None)
  Receive Date: 20120223
  Receipt Date: 20120215
  Transmission Date: 20120608
  Serious: Yes (Hospitalization)
  Sender: FDA-Public Use
  Company Number: IT-ROCHE-1042465

PATIENT
  Sex: Male

DRUGS (1)
  1. TORADOL [Suspect]
     Indication: ABDOMINAL PAIN
     Route: 030
     Dates: start: 20110713, end: 20110714

REACTIONS (2)
  - ABDOMINAL PAIN UPPER [None]
  - ERUCTATION [None]
